FAERS Safety Report 6453980-7 (Version None)
Quarter: 2009Q4

REPORT INFORMATION
  Report Type: 
  Country: None (occurrence: None)
  Receive Date: 20091124
  Receipt Date: 20091117
  Transmission Date: 20100525
  Serious: Yes (Other)
  Sender: FDA-Public Use
  Company Number: US-BAYER-200936730NA

PATIENT
  Sex: Female

DRUGS (1)
  1. BETASERON [Suspect]
     Dates: start: 20091017

REACTIONS (3)
  - INJECTION SITE IRRITATION [None]
  - INJURY ASSOCIATED WITH DEVICE [None]
  - PREGNANCY [None]
